FAERS Safety Report 4651686-8 (Version None)
Quarter: 2005Q2

REPORT INFORMATION
  Report Type: 
  Country: None (occurrence: None)
  Receive Date: 20050502
  Receipt Date: 20050418
  Transmission Date: 20051028
  Serious: Yes (Other)
  Sender: FDA-Public Use
  Company Number: HQWYE169520APR05

PATIENT
  Age: 50 Year
  Sex: Female
  Weight: 45.4 kg

DRUGS (4)
  1. PREMARIN [Suspect]
     Indication: MENOPAUSAL SYMPTOMS
     Dosage: ORAL
     Route: 048
     Dates: start: 19950101, end: 20050411
  2. WELLBUTRIN [Concomitant]
  3. EFFEXOR [Concomitant]
  4. ACIPHEX [Concomitant]

REACTIONS (5)
  - DISEASE RECURRENCE [None]
  - ENDOMETRIAL DISORDER [None]
  - HAEMORRHAGE [None]
  - HOT FLUSH [None]
  - LYMPHOMA [None]
